FAERS Safety Report 8995001 (Version 1)
Quarter: 2012Q4

REPORT INFORMATION
  Report Type: Spontaneous
  Country: US (occurrence: None)
  Receive Date: 20121228
  Receipt Date: 20121228
  Transmission Date: 20130627
  Serious: Yes (Life-Threatening)
  Sender: FDA-Public Use
  Company Number: None

PATIENT
  Age: 58 Year
  Sex: Male
  Weight: 142.88 kg

DRUGS (3)
  1. LISINOPRIL [Suspect]
     Indication: BLOOD PRESSURE HIGH
     Dosage: 20-12.5 Two, in morning po
     Route: 048
  2. AMLODIPINE [Concomitant]
  3. METAPROLOL [Concomitant]

REACTIONS (2)
  - Dizziness [None]
  - Paraesthesia [None]
